FAERS Safety Report 17577286 (Version 1)
Quarter: 2020Q1

REPORT INFORMATION
  Report Type: Spontaneous
  Country: US (occurrence: US)
  Receive Date: 20200324
  Receipt Date: 20200324
  Transmission Date: 20200409
  Serious: No
  Sender: FDA-Public Use
  Company Number: US-SCILEX PHARMACEUTICALS INC.-2020SCX00010

PATIENT
  Age: 59 Year
  Sex: Female

DRUGS (1)
  1. ZTLIDO [Suspect]
     Active Substance: LIDOCAINE
     Indication: PAIN
     Dosage: EVERY 12 HOURS WITH BREAK FOR 12 HOURS
     Route: 061
     Dates: start: 202002, end: 20200216

REACTIONS (9)
  - Insomnia [Not Recovered/Not Resolved]
  - Chromaturia [Unknown]
  - Burning sensation [Not Recovered/Not Resolved]
  - Unevaluable event [Unknown]
  - Pruritus [Recovering/Resolving]
  - Chills [Unknown]
  - Urticaria [Recovering/Resolving]
  - Discomfort [Not Recovered/Not Resolved]
  - Off label use [Recovered/Resolved]

NARRATIVE: CASE EVENT DATE: 202002
